FAERS Safety Report 21010426 (Version 3)
Quarter: 2022Q3

REPORT INFORMATION
  Report Type: Report from Study
  Country: CA (occurrence: CA)
  Receive Date: 20220627
  Receipt Date: 20220718
  Transmission Date: 20221027
  Serious: Yes (Hospitalization)
  Sender: FDA-Public Use
  Company Number: CA-PFIZER INC-PV202200006563

PATIENT
  Age: 73 Year
  Sex: Female
  Weight: 48 kg

DRUGS (26)
  1. ENCORAFENIB [Suspect]
     Active Substance: ENCORAFENIB
     Indication: Malignant melanoma
     Dosage: 225 MG, ONCE DAILY, CONTINOUS SINCE DAY 1
     Route: 048
     Dates: start: 20210507, end: 20220615
  2. BINIMETINIB [Suspect]
     Active Substance: BINIMETINIB
     Indication: Malignant melanoma
     Dosage: 15 MG, TWICE DAILY CONTINUOS SINCE DAY 1
     Route: 048
     Dates: start: 20210507, end: 20220615
  3. LOSARTAN [Suspect]
     Active Substance: LOSARTAN
     Dosage: 25 MG, ONCE, DAY -7, DAY 1 AND DAY 14, TAKEN ONLY ON DAY -7 AND DAY 1
     Route: 048
     Dates: start: 20210430, end: 20210430
  4. LOSARTAN [Suspect]
     Active Substance: LOSARTAN
     Dosage: 25 MG, ONCE, DAY -7, DAY 1 AND DAY 14, TAKEN ONLY ON DAY -7 AND DAY 1
     Route: 048
     Dates: start: 20210507, end: 20210507
  5. MIDAZOLAM [Suspect]
     Active Substance: MIDAZOLAM
     Dosage: 2 MG, ONCE, DAY -7, DAY 1 AND DAY 14, TAKEN ONLY ON DAY -7 AND DAY 1
     Route: 048
     Dates: start: 20210430, end: 20210430
  6. MIDAZOLAM [Suspect]
     Active Substance: MIDAZOLAM
     Dosage: 2 MG, ONCE, DAY -7, DAY 1 AND DAY 14, TAKEN ONLY ON DAY -7 AND DAY 1
     Route: 048
     Dates: start: 20210507, end: 20210507
  7. OMEPRAZOLE [Suspect]
     Active Substance: OMEPRAZOLE
     Dosage: 20 MG, ONCE, DAY -7, DAY 1 AND DAY 14
     Route: 048
     Dates: start: 20210430, end: 20210430
  8. OMEPRAZOLE [Suspect]
     Active Substance: OMEPRAZOLE
     Dosage: 20 MG, ONCE, DAY -7, DAY 1 AND DAY 14
     Route: 048
     Dates: start: 20210507, end: 20210507
  9. DEXTROMETHORPHAN [Suspect]
     Active Substance: DEXTROMETHORPHAN
     Dosage: 15 MG, ONCE, DAY -7, DAY 1 AND DAY 14
     Route: 048
     Dates: start: 20210430, end: 20210430
  10. DEXTROMETHORPHAN [Suspect]
     Active Substance: DEXTROMETHORPHAN
     Dosage: 15 MG, ONCE, DAY -7, DAY 1 AND DAY 14
     Route: 048
     Dates: start: 20210507, end: 20210507
  11. CAFFEINE [Suspect]
     Active Substance: CAFFEINE
     Dosage: 50 MG, ONCE, DAY -7, DAY 1 AND DAY 14
     Route: 048
     Dates: start: 20210430, end: 20210430
  12. CAFFEINE [Suspect]
     Active Substance: CAFFEINE
     Dosage: 50 MG, ONCE, DAY -7, DAY 1 AND DAY 14
     Route: 048
     Dates: start: 20210507, end: 20210507
  13. RAMIPRIL [Concomitant]
     Active Substance: RAMIPRIL
     Indication: Hypertension
     Dosage: 2.5 MG, 1X/DAY
     Route: 048
     Dates: start: 2013
  14. HYDROCHLOROTHIAZIDE [Concomitant]
     Active Substance: HYDROCHLOROTHIAZIDE
     Indication: Hypertension
     Dosage: 25 MG, 1X/DAY
     Route: 048
     Dates: start: 2013
  15. MOMETASONE [Concomitant]
     Active Substance: MOMETASONE
     Indication: Seasonal allergy
     Dosage: 50 UG, IN EACH NOSTRIL DAILY
     Route: 045
     Dates: start: 2000
  16. ALENDRONATE [Concomitant]
     Active Substance: ALENDRONATE SODIUM
     Indication: Osteoporosis
     Dosage: 70 MG, WEEKLY
     Route: 048
     Dates: start: 2007
  17. ACYCLOVIR [Concomitant]
     Active Substance: ACYCLOVIR
     Indication: Oral herpes
     Dosage: 5 %, APPLY ON LIPS WHEN HERPETIC RASHES APPEAR
     Dates: start: 2000
  18. NYSTATIN [Concomitant]
     Active Substance: NYSTATIN
     Indication: Oral candidiasis
     Dosage: 100000 IU/ML, 4X/DAY
     Route: 048
     Dates: start: 20210410, end: 20210510
  19. HYDROMORPHONE HCL [Concomitant]
     Active Substance: HYDROMORPHONE HYDROCHLORIDE
     Indication: Back pain
     Dosage: 3 MG, DAILY
     Route: 048
     Dates: start: 20201007
  20. PREDNISONE [Concomitant]
     Active Substance: PREDNISONE
     Indication: Colitis
     Dosage: 20 MG, DAILY
     Route: 048
     Dates: start: 202102, end: 20211009
  21. PREDNISONE [Concomitant]
     Active Substance: PREDNISONE
     Dosage: 5 MG, DAILY
     Route: 048
     Dates: start: 20211010
  22. PREDNISONE [Concomitant]
     Active Substance: PREDNISONE
     Dosage: 4.5 MG, DAILY
     Route: 048
     Dates: start: 20210402
  23. LOPERAMIDE [Concomitant]
     Active Substance: LOPERAMIDE
     Indication: Colitis
     Dosage: 2 MG, 4X/DAY WHEN DIARRHEA
     Route: 048
     Dates: start: 202102, end: 20210601
  24. LOPERAMIDE [Concomitant]
     Active Substance: LOPERAMIDE
     Indication: Diarrhoea
     Dosage: 2 MG, 4X/DAY WHEN DIARRHEA
     Route: 048
     Dates: start: 20210602
  25. TRAVOPROST [Concomitant]
     Active Substance: TRAVOPROST
     Indication: Glaucoma
     Dosage: 0.004 %, 1 DROP IN EACH EYE AT BEDTIME
     Dates: start: 2015
  26. IBUPROFEN [Concomitant]
     Active Substance: IBUPROFEN
     Indication: Back pain
     Dosage: 400 MG, PER DAY AS NEEDED
     Route: 048
     Dates: start: 20220418

REACTIONS (2)
  - Escherichia bacteraemia [Recovered/Resolved]
  - Escherichia sepsis [Recovered/Resolved]

NARRATIVE: CASE EVENT DATE: 20220615
